FAERS Safety Report 19983132 (Version 2)
Quarter: 2021Q4

REPORT INFORMATION
  Report Type: Spontaneous
  Country: CN (occurrence: CN)
  Receive Date: 20211021
  Receipt Date: 20211029
  Transmission Date: 20220303
  Serious: Yes (Life-Threatening, Hospitalization, Other)
  Sender: FDA-Public Use
  Company Number: CN-OTSUKA-2021_036307

PATIENT
  Age: 71 Year
  Sex: Female
  Weight: 73 kg

DRUGS (23)
  1. TOLVAPTAN [Suspect]
     Active Substance: TOLVAPTAN
     Indication: Hyponatraemia
     Dosage: 15 MG, ONCE
     Route: 048
     Dates: start: 20210710, end: 20210710
  2. TALAZOPARIB [Suspect]
     Active Substance: TALAZOPARIB
     Indication: Neoplasm
     Dosage: 1 MG, QD
     Route: 048
     Dates: start: 20210114
  3. TALAZOPARIB [Suspect]
     Active Substance: TALAZOPARIB
     Dosage: 1 MG, QD
     Route: 048
     Dates: start: 20210123, end: 20210219
  4. TALAZOPARIB [Suspect]
     Active Substance: TALAZOPARIB
     Dosage: 1 MG, QD
     Route: 048
     Dates: start: 20210220, end: 20210317
  5. TALAZOPARIB [Suspect]
     Active Substance: TALAZOPARIB
     Dosage: 1 MG, QD
     Route: 048
     Dates: start: 20210318, end: 20210414
  6. TALAZOPARIB [Suspect]
     Active Substance: TALAZOPARIB
     Dosage: 1 MG, QD
     Route: 048
     Dates: start: 20210415, end: 20210512
  7. TALAZOPARIB [Suspect]
     Active Substance: TALAZOPARIB
     Dosage: 1 MG, QD
     Route: 048
     Dates: start: 20210513, end: 20210609
  8. TALAZOPARIB [Suspect]
     Active Substance: TALAZOPARIB
     Dosage: 1 MG, QD
     Route: 048
     Dates: start: 20210610, end: 20210704
  9. TALAZOPARIB [Suspect]
     Active Substance: TALAZOPARIB
     Dosage: 0.75 MG
     Route: 048
     Dates: start: 20210928
  10. METFORMIN HYDROCHLORIDE [Concomitant]
     Active Substance: METFORMIN HYDROCHLORIDE
     Indication: Type 2 diabetes mellitus
     Dosage: UNK
     Route: 065
     Dates: start: 20210706, end: 20210710
  11. DEXTROSE\SODIUM CHLORIDE [Concomitant]
     Active Substance: DEXTROSE\SODIUM CHLORIDE
     Indication: Hyponatraemia
     Dosage: UNK
     Route: 065
     Dates: start: 20210705, end: 20210705
  12. AMINO ACIDS [Concomitant]
     Active Substance: AMINO ACIDS
     Indication: Hyponatraemia
     Dosage: UNK
     Route: 065
     Dates: start: 20210705, end: 20210705
  13. POTASSIUM CHLORIDE [Concomitant]
     Active Substance: POTASSIUM CHLORIDE
     Indication: Hyponatraemia
     Dosage: UNK
     Route: 065
     Dates: start: 20210705, end: 20210705
  14. POTASSIUM CHLORIDE [Concomitant]
     Active Substance: POTASSIUM CHLORIDE
     Dosage: UNK
     Route: 065
     Dates: start: 20210611, end: 20210716
  15. WATER-SOLUBLE VITAMINS [Concomitant]
     Indication: Hyponatraemia
     Dosage: UNK
     Route: 065
     Dates: start: 20210705, end: 20210705
  16. DEXTROSE [Concomitant]
     Active Substance: DEXTROSE
     Indication: Hyponatraemia
     Dosage: UNK
     Route: 065
     Dates: start: 20210705, end: 20210705
  17. FUROSEMIDE [Concomitant]
     Active Substance: FUROSEMIDE
     Indication: Hyponatraemia
     Dosage: UNK
     Route: 065
     Dates: start: 20210705, end: 20210709
  18. ALBUMIN HUMAN [Concomitant]
     Active Substance: ALBUMIN HUMAN
     Indication: Hypoalbuminaemia
     Dosage: UNK
     Route: 065
     Dates: start: 20210705, end: 20210710
  19. GRANULOCYTE COLONY-STIMULATING FACTOR NOS [Concomitant]
     Active Substance: GRANULOCYTE COLONY-STIMULATING FACTOR NOS
     Indication: White blood cell count decreased
     Dosage: UNK
     Route: 065
     Dates: start: 20210705, end: 20210707
  20. SODIUM CHLORIDE [Concomitant]
     Active Substance: SODIUM CHLORIDE
     Indication: Hyponatraemia
     Dosage: UNK
     Route: 065
     Dates: start: 20210705, end: 20210705
  21. SODIUM CHLORIDE [Concomitant]
     Active Substance: SODIUM CHLORIDE
     Dosage: UNK
     Route: 065
     Dates: start: 20210706, end: 20210711
  22. INSULIN NOS [Concomitant]
     Active Substance: INSULIN NOS
     Indication: Type 2 diabetes mellitus
     Dosage: UNK
     Route: 065
     Dates: start: 20210705, end: 20210705
  23. SODIUM CHLORIDE [Concomitant]
     Active Substance: SODIUM CHLORIDE
     Indication: Hyponatraemia
     Dosage: UNK
     Route: 065
     Dates: start: 20210706, end: 20210711

REACTIONS (2)
  - Hypernatraemia [Recovered/Resolved]
  - Diabetic hyperosmolar coma [Unknown]

NARRATIVE: CASE EVENT DATE: 20210711
